FAERS Safety Report 21011255 (Version 1)
Quarter: 2022Q2

REPORT INFORMATION
  Report Type: Report from Study
  Country: US (occurrence: US)
  Receive Date: 20220627
  Receipt Date: 20220627
  Transmission Date: 20220721
  Serious: Yes (Hospitalization)
  Sender: FDA-Public Use
  Company Number: US-MYLANLABS-2022M1048701

PATIENT
  Age: 27 Year
  Sex: Male

DRUGS (12)
  1. CLOZAPINE [Suspect]
     Active Substance: CLOZAPINE
     Indication: Schizoaffective disorder
     Dosage: 25 MILLIGRAM, QD (DOSE TITRATED TO 200 MG/DAY)
     Route: 065
  2. CLOZAPINE [Suspect]
     Active Substance: CLOZAPINE
     Dosage: 12.5 MILLIGRAM, QD
     Route: 065
  3. RISPERIDONE [Suspect]
     Active Substance: RISPERIDONE
     Indication: Schizoaffective disorder
     Dosage: UNK
     Route: 065
  4. OLANZAPINE [Suspect]
     Active Substance: OLANZAPINE
     Indication: Schizoaffective disorder
     Dosage: UNK
     Route: 065
  5. LURASIDONE [Suspect]
     Active Substance: LURASIDONE
     Indication: Schizoaffective disorder
     Dosage: UNK
     Route: 065
  6. QUETIAPINE [Concomitant]
     Active Substance: QUETIAPINE
     Indication: Schizoaffective disorder
     Dosage: 800 MILLIGRAM, QD
     Route: 065
  7. SERTRALINE [Concomitant]
     Active Substance: SERTRALINE HYDROCHLORIDE
     Indication: Schizoaffective disorder
     Dosage: UNK
     Route: 065
  8. DIPHENHYDRAMINE [Concomitant]
     Active Substance: DIPHENHYDRAMINE
     Indication: Schizoaffective disorder
     Dosage: 100 MILLIGRAM, QD
     Route: 065
  9. CHLORPROMAZINE [Concomitant]
     Active Substance: CHLORPROMAZINE
     Indication: Schizoaffective disorder
     Dosage: 100 MILLIGRAM, QD
     Route: 065
  10. ZIPRASIDONE [Concomitant]
     Active Substance: ZIPRASIDONE
     Indication: Schizoaffective disorder
     Dosage: 80 MILLIGRAM, QD
     Route: 065
  11. LITHIUM [Concomitant]
     Active Substance: LITHIUM
     Indication: Schizoaffective disorder
     Dosage: 900 MILLIGRAM, QD
     Route: 065
  12. BENZTROPINE [Concomitant]
     Active Substance: BENZTROPINE
     Indication: Schizoaffective disorder
     Dosage: 1 MILLIGRAM, QD
     Route: 065

REACTIONS (3)
  - Myocarditis [Recovered/Resolved]
  - Drug ineffective [Unknown]
  - Drug reaction with eosinophilia and systemic symptoms [Recovered/Resolved]
